FAERS Safety Report 6640138-1 (Version None)
Quarter: 2010Q1

REPORT INFORMATION
  Report Type: 
  Country: None (occurrence: None)
  Receive Date: 20100315
  Receipt Date: 20100226
  Transmission Date: 20100710
  Serious: Yes (Hospitalization)
  Sender: FDA-Public Use
  Company Number: AUR-APL-2010-00611

PATIENT
  Age: 74 Year
  Sex: Female
  Weight: 75 kg

DRUGS (12)
  1. MIRTAZAPINE [Suspect]
     Indication: LEUKOENCEPHALOPATHY
     Dosage: 15/30MG, BID, ORAL
     Route: 048
     Dates: start: 20091028, end: 20100105
  2. LARIAM [Suspect]
     Indication: LEUKOENCEPHALOPATHY
     Dosage: 250MG, WEEKLY, ORAL
     Route: 048
     Dates: start: 20091028, end: 20091231
  3. PANTOPRAZOLE [Suspect]
     Indication: GASTROOESOPHAGEAL REFLUX DISEASE
     Dosage: 40MG-ORAL
     Route: 048
     Dates: start: 20090601
  4. ACETYLSALICYLIC ACID [Suspect]
     Indication: CORONARY ARTERY DISEASE
     Dosage: 100MG-ORAL
     Route: 048
     Dates: start: 20090901
  5. TORSEMIDE [Suspect]
     Indication: RENAL FAILURE CHRONIC
     Dosage: 10MG-ORAL
     Route: 048
     Dates: start: 20090601
  6. CLOPIDOGREL SULFATE (ISCOVER) [Suspect]
     Indication: CORONARY ARTERY DISEASE
     Dosage: 75MG-ORAL
     Route: 048
     Dates: start: 20090901
  7. PREDNISOLONE [Concomitant]
  8. DIGITOXIN TAB [Concomitant]
  9. CALCIUM CARBONATE [Concomitant]
  10. SPIRONOLACTONE [Concomitant]
  11. IRBESARTAN [Concomitant]
  12. ACTRAPID (INSULIN HUMAN) [Concomitant]

REACTIONS (3)
  - ENDOCARDITIS [None]
  - PANCYTOPENIA [None]
  - PYREXIA [None]
